FAERS Safety Report 4655096-9 (Version None)
Quarter: 2005Q2

REPORT INFORMATION
  Report Type: 
  Country: None (occurrence: None)
  Receive Date: 20050505
  Receipt Date: 20050207
  Transmission Date: 20051028
  Serious: Yes (Other)
  Sender: FDA-Public Use
  Company Number: 805#1#2005-00004

PATIENT
  Age: 67 Year
  Sex: Male

DRUGS (3)
  1. ALPROSTADIL [Suspect]
     Indication: SUDDEN HEARING LOSS
     Dosage: 60 MCG (60MCG 1 IN 1 DAY (S) ) INTRAVENOUS DRIP
     Route: 041
     Dates: start: 20050128, end: 20050129
  2. PREDNISONE [Concomitant]
  3. CIMETIDINE [Concomitant]

REACTIONS (3)
  - ASTHMA [None]
  - INFLUENZA [None]
  - RESPIRATORY DISTRESS [None]
